FAERS Safety Report 6516063-3 (Version None)
Quarter: 2009Q4

REPORT INFORMATION
  Report Type: 
  Country: None (occurrence: None)
  Receive Date: 20091223
  Receipt Date: 20091104
  Transmission Date: 20100525
  Serious: No
  Sender: FDA-Public Use
  Company Number: US-ABBOTT-09P-163-0607291-00

PATIENT
  Sex: Male
  Weight: 86.26 kg

DRUGS (2)
  1. LUPRON DEPOT [Suspect]
     Indication: PROSTATE CANCER
     Dates: start: 20090601, end: 20090601
  2. UNKNOWN MEDICATION [Concomitant]
     Indication: SLEEP DISORDER THERAPY

REACTIONS (2)
  - BACK PAIN [None]
  - HOT FLUSH [None]
